FAERS Safety Report 11470995 (Version 2)
Quarter: 2015Q3

REPORT INFORMATION
  Report Type: Spontaneous
  Country: US (occurrence: US)
  Receive Date: 20150903
  Receipt Date: 20150903
  Transmission Date: 20151125
  Serious: No
  Sender: FDA-Public Use
  Company Number: US-ELI_LILLY_AND_COMPANY-US201108009374

PATIENT
  Age: 55 Year
  Sex: Female

DRUGS (3)
  1. VITAMINS [Concomitant]
     Active Substance: VITAMINS
  2. CYMBALTA [Suspect]
     Active Substance: DULOXETINE HYDROCHLORIDE
     Indication: ANXIETY
     Dosage: 60 MG, QD
     Dates: start: 2004
  3. PLAQUENIL [Concomitant]
     Active Substance: HYDROXYCHLOROQUINE SULFATE

REACTIONS (4)
  - Drug dose omission [Unknown]
  - Drug effect decreased [Not Recovered/Not Resolved]
  - Gastric bypass [Unknown]
  - Abnormal dreams [Unknown]

NARRATIVE: CASE EVENT DATE: 201108
